FAERS Safety Report 15082066 (Version 1)
Quarter: 2018Q2

REPORT INFORMATION
  Report Type: Spontaneous
  Country: IT (occurrence: IT)
  Receive Date: 20180628
  Receipt Date: 20180628
  Transmission Date: 20180711
  Serious: Yes (Hospitalization)
  Sender: FDA-Public Use
  Company Number: IT-KALEO, INC.-2013SA112352

PATIENT
  Age: 66 Year
  Sex: Female

DRUGS (2)
  1. CARBOCAINE [Concomitant]
     Active Substance: MEPIVACAINE HYDROCHLORIDE
     Indication: LOCAL ANAESTHESIA
  2. AUVI-Q [Suspect]
     Active Substance: EPINEPHRINE
     Indication: LOCAL ANAESTHESIA
     Route: 065

REACTIONS (8)
  - Stress cardiomyopathy [Recovered/Resolved]
  - Left ventricular dysfunction [Recovered/Resolved]
  - Ventricular hyperkinesia [Recovered/Resolved]
  - Troponin I increased [Recovered/Resolved]
  - Ventricular dyskinesia [Recovered/Resolved]
  - Chest pain [Recovered/Resolved]
  - Electrocardiogram ST segment elevation [Recovered/Resolved]
  - Electrocardiogram QT prolonged [Unknown]
